FAERS Safety Report 15857745 (Version 1)
Quarter: 2018Q4

REPORT INFORMATION
  Report Type: Spontaneous
  Country: US (occurrence: US)
  Receive Date: 20181228
  Receipt Date: 20181228
  Transmission Date: 20190205
  Serious: Yes (Hospitalization)
  Sender: FDA-Public Use
  Company Number: None

PATIENT
  Age: 71 Year
  Sex: Male
  Weight: 95.7 kg

DRUGS (1)
  1. NEXAVAR [Suspect]
     Active Substance: SORAFENIB
     Dates: end: 20181222

REACTIONS (5)
  - Depressed level of consciousness [None]
  - Hepatic encephalopathy [None]
  - Therapy cessation [None]
  - Confusional state [None]
  - Urinary incontinence [None]

NARRATIVE: CASE EVENT DATE: 20181223
